FAERS Safety Report 12364442 (Version 2)
Quarter: 2016Q2

REPORT INFORMATION
  Report Type: Spontaneous
  Country: CH (occurrence: CH)
  Receive Date: 20160513
  Receipt Date: 20160518
  Transmission Date: 20160815
  Serious: Yes (Death, Other)
  Sender: FDA-Public Use
  Company Number: CH-ROCHE-1757290

PATIENT
  Age: 62 Year
  Sex: Male

DRUGS (8)
  1. ASPIRIN CARDIO [Concomitant]
     Active Substance: ASPIRIN
  2. TORASEMID [Concomitant]
     Active Substance: TORSEMIDE
  3. OMEPRAZOL [Concomitant]
     Active Substance: OMEPRAZOLE
  4. SPIRICORT [Concomitant]
     Active Substance: PREDNISOLONE
     Route: 065
  5. ESBRIET [Suspect]
     Active Substance: PIRFENIDONE
     Indication: IDIOPATHIC PULMONARY FIBROSIS
     Route: 048
     Dates: start: 20151113
  6. BRILIQUE [Concomitant]
     Active Substance: TICAGRELOR
  7. CRESTOR [Concomitant]
     Active Substance: ROSUVASTATIN CALCIUM
  8. METO ZEROK [Concomitant]
     Active Substance: METOPROLOL SUCCINATE

REACTIONS (5)
  - Infection [Fatal]
  - Cardiac failure [Fatal]
  - Drug eruption [Unknown]
  - Pulmonary embolism [Fatal]
  - Drug ineffective [Unknown]

NARRATIVE: CASE EVENT DATE: 201604
